FAERS Safety Report 17911893 (Version 1)
Quarter: 2020Q2

REPORT INFORMATION
  Report Type: Spontaneous
  Country: CH (occurrence: CH)
  Receive Date: 20200618
  Receipt Date: 20200618
  Transmission Date: 20200714
  Serious: Yes (Other)
  Sender: FDA-Public Use
  Company Number: CH-HORIZON-PRE-0187-2020

PATIENT
  Age: 56 Year
  Sex: Female

DRUGS (4)
  1. PREDNISONE. [Suspect]
     Active Substance: PREDNISONE
     Indication: BIRDSHOT CHORIORETINOPATHY
  2. AZATHIOPRINE. [Concomitant]
     Active Substance: AZATHIOPRINE
  3. TRIAMCINOLONE [Suspect]
     Active Substance: TRIAMCINOLONE
     Indication: BIRDSHOT CHORIORETINOPATHY
  4. CYCLOSPORIN [Concomitant]
     Active Substance: CYCLOSPORINE

REACTIONS (6)
  - Intraocular pressure increased [Unknown]
  - Mood swings [Unknown]
  - Anaemia [Unknown]
  - Fatigue [Unknown]
  - Hirsutism [Unknown]
  - Renal impairment [Unknown]
